FAERS Safety Report 10195983 (Version 2)
Quarter: 2014Q4

REPORT INFORMATION
  Report Type: Spontaneous
  Country: FR (occurrence: None)
  Receive Date: 20140521
  Receipt Date: 20141014
  Transmission Date: 20150528
  Serious: Yes (Life-Threatening, Other)
  Sender: FDA-Public Use
  Company Number: 2014-19555

PATIENT
  Age: 71 Year
  Sex: Male

DRUGS (3)
  1. INDAPAMIDE (INDAPAMIDE) [Suspect]
     Active Substance: INDAPAMIDE
  2. EYLEA [Suspect]
     Active Substance: AFLIBERCEPT
     Indication: PRODUCT USED FOR UNKNOWN INDICATION
     Route: 031
     Dates: start: 20140303
  3. LERCAN (LERACNIDIPINE HYDROCHLORIDE) [Concomitant]

REACTIONS (2)
  - Myocardial infarction [None]
  - Coronary arterial stent insertion [None]

NARRATIVE: CASE EVENT DATE: 201403
